FAERS Safety Report 6388997-4 (Version None)
Quarter: 2009Q4

REPORT INFORMATION
  Report Type: 
  Country: None (occurrence: None)
  Receive Date: 20091001
  Receipt Date: 20090923
  Transmission Date: 20100525
  Serious: No
  Sender: FDA-Public Use
  Company Number: 381646

PATIENT
  Age: 59 Year
  Sex: Male
  Weight: 91 kg

DRUGS (1)
  1. LIDOCAINE [Suspect]
     Indication: DRUG USE FOR UNKNOWN INDICATION
     Dosage: 2CC, PRN, DENTAL
     Route: 004
     Dates: start: 20090916, end: 20090916

REACTIONS (3)
  - HYPERHIDROSIS [None]
  - NAUSEA [None]
  - PAIN [None]
